FAERS Safety Report 11057274 (Version 1)
Quarter: 2015Q2

REPORT INFORMATION
  Report Type: Spontaneous
  Country: BR (occurrence: BR)
  Receive Date: 20150422
  Receipt Date: 20150422
  Transmission Date: 20150821
  Serious: Yes (Other)
  Sender: FDA-Public Use
  Company Number: BR-BAYER-2015-129732

PATIENT
  Age: 38 Year
  Sex: Female

DRUGS (1)
  1. MIRENA [Suspect]
     Active Substance: LEVONORGESTREL
     Indication: MENORRHAGIA
     Dosage: 20 MCG/24HR, CONT
     Route: 015
     Dates: start: 201411

REACTIONS (6)
  - Sacroiliitis [None]
  - Pain [Recovering/Resolving]
  - Arthralgia [None]
  - Myalgia [None]
  - C-reactive protein increased [None]
  - Ankylosing spondylitis [None]

NARRATIVE: CASE EVENT DATE: 201502
